FAERS Safety Report 4597715-1 (Version None)
Quarter: 2005Q1

REPORT INFORMATION
  Report Type: 
  Country: None (occurrence: None)
  Receive Date: 20050125
  Receipt Date: 20041004
  Transmission Date: 20050727
  Serious: No
  Sender: FDA-Public Use
  Company Number: USA040875976

PATIENT
  Age: 69 Year
  Sex: Male

DRUGS (8)
  1. FORTEO [Suspect]
     Indication: OSTEOPOROSIS
     Dosage: 20 UG DAY
     Dates: start: 20040721
  2. METOPROLOL [Concomitant]
  3. FLOMAX [Concomitant]
  4. FLURBIPROFEN [Concomitant]
  5. LIPITOR [Concomitant]
  6. DOXAZOSIN [Concomitant]
  7. LOTREL [Concomitant]
  8. ASPIRIN [Concomitant]

REACTIONS (2)
  - ARTHRALGIA [None]
  - INJECTION SITE HAEMORRHAGE [None]
